FAERS Safety Report 16233761 (Version 1)
Quarter: 2019Q2

REPORT INFORMATION
  Report Type: Spontaneous
  Country: US (occurrence: US)
  Receive Date: 20190320
  Receipt Date: 20190320
  Transmission Date: 20190711
  Serious: Yes (Life-Threatening)
  Sender: FDA-Public Use
  Company Number: None

PATIENT
  Age: 58 Year
  Sex: Female

DRUGS (1)
  1. METHADONE [Suspect]
     Active Substance: METHADONE HYDROCHLORIDE
     Indication: PAIN MANAGEMENT
     Dosage: 10MG/5ML THREE TIMES PER DAY ORALLY OR GT
     Route: 048
     Dates: start: 20180707

REACTIONS (3)
  - Accidental overdose [None]
  - Product dispensing error [None]
  - Unresponsive to stimuli [None]

NARRATIVE: CASE EVENT DATE: 20160707
